FAERS Safety Report 12366414 (Version 1)
Quarter: 2016Q2

REPORT INFORMATION
  Report Type: Spontaneous
  Country: KE (occurrence: KE)
  Receive Date: 20160513
  Receipt Date: 20160513
  Transmission Date: 20160815
  Serious: Yes (Death)
  Sender: FDA-Public Use
  Company Number: KE-ABBVIE-16P-089-1627121-00

PATIENT
  Age: 0 Day
  Sex: Male

DRUGS (2)
  1. SURVANTA [Suspect]
     Active Substance: BERACTANT
     Indication: NEONATAL RESPIRATORY DISTRESS SYNDROME
     Dosage: SINGLE DOSE
     Route: 065
     Dates: start: 20160509, end: 20160509
  2. SURVANTA [Suspect]
     Active Substance: BERACTANT
     Indication: MECONIUM ASPIRATION SYNDROME

REACTIONS (2)
  - Gastrointestinal haemorrhage [Fatal]
  - Meconium aspiration syndrome [Fatal]

NARRATIVE: CASE EVENT DATE: 20160509
